FAERS Safety Report 8378452-4 (Version None)
Quarter: 2012Q2

REPORT INFORMATION
  Report Type: 
  Country: None (occurrence: None)
  Receive Date: 20120522
  Receipt Date: 20111222
  Transmission Date: 20120825
  Serious: No
  Sender: FDA-Public Use
  Company Number: US-ASTRAZENECA-2011SE62384

PATIENT
  Age: 55 Year
  Sex: Female
  Weight: 76.2 kg

DRUGS (19)
  1. SEROQUEL [Suspect]
     Route: 048
  2. SEROQUEL [Suspect]
     Indication: PANIC ATTACK
     Route: 048
  3. SEROQUEL [Suspect]
     Indication: INSOMNIA
     Route: 048
  4. XANAX [Concomitant]
     Indication: PANIC DISORDER
  5. FENOFIBRATE [Concomitant]
     Indication: BLOOD CHOLESTEROL INCREASED
     Route: 048
  6. PRAVASTATIN [Concomitant]
     Indication: BLOOD TRIGLYCERIDES INCREASED
     Route: 048
  7. PRILOSEC [Suspect]
     Indication: GASTROOESOPHAGEAL REFLUX DISEASE
     Route: 048
  8. SEROQUEL [Suspect]
     Indication: HYPERVIGILANCE
     Route: 048
  9. SEROQUEL [Suspect]
     Route: 048
  10. CELEXA [Concomitant]
     Indication: DEPRESSION
  11. PRAVASTATIN [Concomitant]
     Indication: BLOOD CHOLESTEROL INCREASED
     Route: 048
  12. AMBIEN [Concomitant]
     Indication: INSOMNIA
  13. SEROQUEL [Suspect]
     Indication: SCHIZOPHRENIA
     Route: 048
  14. SEROQUEL [Suspect]
     Route: 048
  15. FENOFIBRATE [Concomitant]
     Indication: BLOOD TRIGLYCERIDES INCREASED
     Route: 048
  16. FISH OIL [Concomitant]
     Route: 048
  17. SEROQUEL [Suspect]
     Route: 048
  18. SYNTHROID [Concomitant]
     Indication: HYPOTHYROIDISM
  19. LEVOTHYROXINE SODIUM [Concomitant]
     Indication: HYPERTHYROIDISM
     Route: 048

REACTIONS (29)
  - ANXIETY [None]
  - MEMORY IMPAIRMENT [None]
  - DEPRESSED MOOD [None]
  - AGGRESSION [None]
  - BLOOD CHOLESTEROL INCREASED [None]
  - FALL [None]
  - THERAPEUTIC RESPONSE UNEXPECTED [None]
  - DRUG DOSE OMISSION [None]
  - APHAGIA [None]
  - MENTAL IMPAIRMENT [None]
  - FEELING ABNORMAL [None]
  - FATIGUE [None]
  - ASTHENIA [None]
  - WRONG TECHNIQUE IN DRUG USAGE PROCESS [None]
  - PSYCHOTIC DISORDER [None]
  - NERVOUSNESS [None]
  - DAYDREAMING [None]
  - INSOMNIA [None]
  - CHRONIC OBSTRUCTIVE PULMONARY DISEASE [None]
  - PARANOIA [None]
  - HALLUCINATION [None]
  - DRUG WITHDRAWAL SYNDROME [None]
  - WEIGHT INCREASED [None]
  - SOMNOLENCE [None]
  - OFF LABEL USE [None]
  - PERSECUTORY DELUSION [None]
  - VISUAL IMPAIRMENT [None]
  - BALANCE DISORDER [None]
  - MIDDLE INSOMNIA [None]
